FAERS Safety Report 19016157 (Version 32)
Quarter: 2023Q1

REPORT INFORMATION
  Report Type: Report from Study
  Country: DK (occurrence: DK)
  Receive Date: 20210316
  Receipt Date: 20230307
  Transmission Date: 20230418
  Serious: Yes (Death, Life-Threatening, Hospitalization, Disabling, Other)
  Sender: FDA-Public Use
  Company Number: None

PATIENT
  Age: 5 Year
  Sex: Male
  Weight: 18 kg

DRUGS (94)
  1. PIPERACILLIN SODIUM\TAZOBACTAM SODIUM [Suspect]
     Active Substance: PIPERACILLIN SODIUM\TAZOBACTAM SODIUM
     Indication: Vomiting
     Dosage: UNK
  2. PIPERACILLIN SODIUM\TAZOBACTAM SODIUM [Suspect]
     Active Substance: PIPERACILLIN SODIUM\TAZOBACTAM SODIUM
     Indication: Respiratory arrest
     Dosage: UNK
  3. MEROPENEM [Suspect]
     Active Substance: MEROPENEM
     Indication: Antibiotic therapy
     Dosage: UNK
  4. MEROPENEM [Suspect]
     Active Substance: MEROPENEM
     Dosage: UNK
  5. MEROPENEM [Suspect]
     Active Substance: MEROPENEM
     Dosage: UNK
  6. MEROPENEM [Suspect]
     Active Substance: MEROPENEM
     Dosage: UNK
  7. MEROPENEM [Suspect]
     Active Substance: MEROPENEM
     Dosage: UNK
  8. AMOXICILLIN\CLAVULANIC ACID [Suspect]
     Active Substance: AMOXICILLIN\CLAVULANIC ACID
     Indication: Pneumonia
     Dosage: UNK
     Dates: start: 20150611
  9. AMOXICILLIN\CLAVULANIC ACID [Suspect]
     Active Substance: AMOXICILLIN\CLAVULANIC ACID
     Dosage: UNK
     Dates: start: 20160714, end: 20160720
  10. CIPROFLOXACIN [Suspect]
     Active Substance: CIPROFLOXACIN
     Indication: Product used for unknown indication
     Dosage: UNK
  11. CIPROFLOXACIN [Suspect]
     Active Substance: CIPROFLOXACIN
     Dosage: UNK
  12. CIPROFLOXACIN [Suspect]
     Active Substance: CIPROFLOXACIN
     Dosage: UNK
  13. PENICILLIN V [Suspect]
     Active Substance: PENICILLIN V
     Indication: Antibiotic therapy
     Dosage: UNK
     Route: 042
  14. PENICILLIN V [Suspect]
     Active Substance: PENICILLIN V
     Dosage: UNK
  15. PENICILLIN V [Suspect]
     Active Substance: PENICILLIN V
     Dosage: UNK
  16. CEFUROXIME [Suspect]
     Active Substance: CEFUROXIME
     Indication: Antibiotic therapy
     Dosage: UNK
     Route: 042
  17. ALBUTEROL [Suspect]
     Active Substance: ALBUTEROL
     Indication: Product used for unknown indication
     Dosage: UNK
  18. ALBUTEROL [Suspect]
     Active Substance: ALBUTEROL
     Dosage: UNK
  19. AMOXICILLIN [Suspect]
     Active Substance: AMOXICILLIN
     Indication: Product used for unknown indication
     Dosage: UNK
  20. PROPOFOL [Suspect]
     Active Substance: PROPOFOL
     Indication: Product used for unknown indication
     Dosage: EMULSION FOR INJECTION
  21. PROPOFOL [Suspect]
     Active Substance: PROPOFOL
     Dosage: UNK
  22. PROPOFOL [Suspect]
     Active Substance: PROPOFOL
     Dosage: UNK
  23. DEXTROSE [Suspect]
     Active Substance: DEXTROSE
     Indication: Pneumonia
     Dosage: UNK
  24. DEXTROSE [Suspect]
     Active Substance: DEXTROSE
     Dosage: UNK
  25. DURAGESIC [Suspect]
     Active Substance: FENTANYL
     Indication: Cerebral ischaemia
     Dosage: UNK
  26. DURAGESIC [Suspect]
     Active Substance: FENTANYL
     Indication: Pneumonia aspiration
  27. DURAGESIC [Suspect]
     Active Substance: FENTANYL
     Indication: Circulatory collapse
  28. DURAGESIC [Suspect]
     Active Substance: FENTANYL
     Indication: Respiratory tract infection bacterial
  29. DURAGESIC [Suspect]
     Active Substance: FENTANYL
     Indication: Pneumococcal infection
  30. DURAGESIC [Suspect]
     Active Substance: FENTANYL
     Indication: Intestinal ischaemia
  31. DURAGESIC [Suspect]
     Active Substance: FENTANYL
     Indication: Pneumonia
  32. PENICILLIN G [Suspect]
     Active Substance: PENICILLIN G
     Indication: Antibiotic therapy
     Dosage: UNK
     Route: 042
  33. PENICILLIN G [Suspect]
     Active Substance: PENICILLIN G
     Indication: Mumps immunisation
     Dosage: UNK
  34. PENICILLIN G [Suspect]
     Active Substance: PENICILLIN G
     Dosage: UNK
  35. RUBELLA AND MUMPS VIRUS VACCINE, LIVE [Suspect]
     Active Substance: RUBELLA AND MUMPS VIRUS VACCINE, LIVE
     Indication: Pneumococcal sepsis
     Dosage: UNK
  36. RUBELLA AND MUMPS VIRUS VACCINE, LIVE [Suspect]
     Active Substance: RUBELLA AND MUMPS VIRUS VACCINE, LIVE
     Dosage: UNK
  37. RUBELLA AND MUMPS VIRUS VACCINE, LIVE [Suspect]
     Active Substance: RUBELLA AND MUMPS VIRUS VACCINE, LIVE
     Dosage: UNK
  38. RUBELLA AND MUMPS VIRUS VACCINE, LIVE [Suspect]
     Active Substance: RUBELLA AND MUMPS VIRUS VACCINE, LIVE
     Dosage: UNK
  39. GENTAMICIN SULFATE [Suspect]
     Active Substance: GENTAMICIN SULFATE
     Indication: Antibiotic therapy
     Dosage: UNK
     Route: 042
  40. GENTAMICIN SULFATE [Suspect]
     Active Substance: GENTAMICIN SULFATE
     Indication: Measles immunisation
     Dosage: UNK
  41. GENTAMICIN SULFATE [Suspect]
     Active Substance: GENTAMICIN SULFATE
     Indication: Mumps immunisation
     Dosage: UNK
  42. GENTAMICIN SULFATE [Suspect]
     Active Substance: GENTAMICIN SULFATE
     Indication: Rubella immunisation
     Dosage: UNK
  43. GENTAMICIN SULFATE [Suspect]
     Active Substance: GENTAMICIN SULFATE
     Indication: Pneumococcal sepsis
     Dosage: UNK
  44. ALBUTEROL [Suspect]
     Active Substance: ALBUTEROL
     Indication: Product used for unknown indication
     Dosage: UNK
  45. ALBUTEROL [Suspect]
     Active Substance: ALBUTEROL
     Dosage: UNK
  46. DEXTROSE\POTASSIUM CHLORIDE\SODIUM CHLORIDE\SODIUM CITRATE [Suspect]
     Active Substance: DEXTROSE\POTASSIUM CHLORIDE\SODIUM CHLORIDE\SODIUM CITRATE
     Indication: Pneumonia
     Dosage: (DARROW LIQ GLUCOSE)
  47. DEXTROSE\POTASSIUM CHLORIDE\SODIUM CHLORIDE\SODIUM CITRATE [Suspect]
     Active Substance: DEXTROSE\POTASSIUM CHLORIDE\SODIUM CHLORIDE\SODIUM CITRATE
     Dosage: UNK
  48. PULMOZYME [Suspect]
     Active Substance: DORNASE ALFA
     Indication: Interstitial lung disease
     Dosage: UNK
  49. PULMOZYME [Suspect]
     Active Substance: DORNASE ALFA
     Indication: Interstitial lung disease
     Dosage: UNK
  50. PULMOZYME [Suspect]
     Active Substance: DORNASE ALFA
     Dosage: UNK
  51. PULMOZYME [Suspect]
     Active Substance: DORNASE ALFA
     Dosage: UNK
  52. AMOXICILLIN\CLAVULANATE POTASSIUM [Suspect]
     Active Substance: AMOXICILLIN\CLAVULANATE POTASSIUM
     Indication: Pneumonia
     Dosage: UNK
     Dates: start: 20150611
  53. AMOXICILLIN\CLAVULANATE POTASSIUM [Suspect]
     Active Substance: AMOXICILLIN\CLAVULANATE POTASSIUM
     Dosage: UNK
     Dates: start: 20160714, end: 20160720
  54. POTASSIUM CHLORIDE [Suspect]
     Active Substance: POTASSIUM CHLORIDE
     Indication: Pneumonia
     Dosage: UNK
  55. POTASSIUM CHLORIDE [Suspect]
     Active Substance: POTASSIUM CHLORIDE
     Indication: Pneumonia
     Dosage: UNK
  56. POTASSIUM CHLORIDE [Suspect]
     Active Substance: POTASSIUM CHLORIDE
     Dosage: UNK
  57. TRISODIUM CITRATE DIHYDRATE [Suspect]
     Active Substance: TRISODIUM CITRATE DIHYDRATE
     Indication: Pneumonia
     Dosage: UNK
  58. TRISODIUM CITRATE DIHYDRATE [Suspect]
     Active Substance: TRISODIUM CITRATE DIHYDRATE
     Dosage: UNK
  59. TRISODIUM CITRATE DIHYDRATE [Suspect]
     Active Substance: TRISODIUM CITRATE DIHYDRATE
     Dosage: UNK
  60. TRISODIUM CITRATE DIHYDRATE [Suspect]
     Active Substance: TRISODIUM CITRATE DIHYDRATE
     Dosage: UNK
  61. DORNASE ALFA [Suspect]
     Active Substance: DORNASE ALFA
     Indication: Interstitial lung disease
     Dosage: UNK, FORMULATION: PRESSURISED INHALATION
  62. DORNASE ALFA [Suspect]
     Active Substance: DORNASE ALFA
     Indication: Interstitial lung disease
  63. CLAVULANATE POTASSIUM [Suspect]
     Active Substance: CLAVULANATE POTASSIUM
     Indication: Product used for unknown indication
     Dosage: UNK
  64. CLAVULANATE POTASSIUM [Suspect]
     Active Substance: CLAVULANATE POTASSIUM
     Dosage: UNK
  65. PENICILLIN G [Suspect]
     Active Substance: PENICILLIN G
     Indication: Product used for unknown indication
     Dosage: UNK
  66. RUBELLA VIRUS VACCINE LIVE ATTENUATED [Suspect]
     Active Substance: RUBELLA VIRUS STRAIN WISTAR RA 27/3 LIVE ANTIGEN
     Indication: Pneumococcal sepsis
     Dosage: UNK
  67. RUBELLA VIRUS VACCINE LIVE ATTENUATED [Suspect]
     Active Substance: RUBELLA VIRUS STRAIN WISTAR RA 27/3 LIVE ANTIGEN
     Dosage: UNK
  68. FENTANYL CITRATE [Suspect]
     Active Substance: FENTANYL CITRATE
     Indication: Pneumococcal infection
     Dosage: UNK
  69. M-M-RVAXPRO [Suspect]
     Active Substance: MEASLES VIRUS STRAIN ENDERS^ ATTENUATED EDMONSTON LIVE ANTIGEN\MUMPS VIRUS STRAIN B LEVEL JERYL LYNN
     Indication: Pneumococcal sepsis
     Dosage: UNK
     Dates: start: 20170918, end: 20170918
  70. M-M-RVAXPRO [Suspect]
     Active Substance: MEASLES VIRUS STRAIN ENDERS^ ATTENUATED EDMONSTON LIVE ANTIGEN\MUMPS VIRUS STRAIN B LEVEL JERYL LYNN
     Indication: Immunisation
  71. VENTOLIN [Suspect]
     Active Substance: ALBUTEROL SULFATE
     Indication: Product used for unknown indication
     Dosage: UNK
  72. FENTANYL [Suspect]
     Active Substance: FENTANYL
     Indication: Intestinal ischaemia
     Dosage: UNK
  73. FENTANYL [Suspect]
     Active Substance: FENTANYL
     Indication: Pneumonia aspiration
     Dosage: UNK
  74. FENTANYL [Suspect]
     Active Substance: FENTANYL
     Indication: Circulatory collapse
  75. FENTANYL [Suspect]
     Active Substance: FENTANYL
     Indication: Respiratory tract infection bacterial
  76. FENTANYL [Suspect]
     Active Substance: FENTANYL
     Indication: Pneumococcal infection
  77. FENTANYL [Suspect]
     Active Substance: FENTANYL
     Indication: Brain injury
  78. FENTANYL [Suspect]
     Active Substance: FENTANYL
     Indication: Pneumonia
  79. FENTANYL [Suspect]
     Active Substance: FENTANYL
     Indication: Interstitial lung disease
  80. FENTANYL [Suspect]
     Active Substance: FENTANYL
     Indication: Cerebral ischaemia
  81. FENTANYL [Suspect]
     Active Substance: FENTANYL
     Indication: Analgesic therapy
  82. AMOXICILLIN\CLAVULANATE POTASSIUM [Suspect]
     Active Substance: AMOXICILLIN\CLAVULANATE POTASSIUM
     Indication: Pneumonia
     Dosage: UNK
     Dates: start: 20150611, end: 20160720
  83. AMOXICILLIN\CLAVULANATE POTASSIUM [Suspect]
     Active Substance: AMOXICILLIN\CLAVULANATE POTASSIUM
     Dosage: UNK
     Dates: start: 20160714, end: 20160720
  84. CEFUROXIME [Suspect]
     Active Substance: CEFUROXIME
     Indication: Antibiotic therapy
     Dosage: UNK
  85. GENTAMICIN [Suspect]
     Active Substance: GENTAMICIN
     Indication: Antibiotic therapy
     Dosage: UNK
  86. GENTAMICIN [Suspect]
     Active Substance: GENTAMICIN
     Indication: Measles immunisation
     Dosage: UNK
  87. GENTAMICIN [Suspect]
     Active Substance: GENTAMICIN
     Indication: Mumps immunisation
     Dosage: UNK
  88. GENTAMICIN [Suspect]
     Active Substance: GENTAMICIN
     Indication: Rubella immunisation
     Dosage: UNK
  89. GENTAMICIN [Suspect]
     Active Substance: GENTAMICIN
     Indication: Pneumococcal sepsis
     Dosage: UNK
  90. GENTAMICIN [Suspect]
     Active Substance: GENTAMICIN
     Dosage: UNK
  91. PIPERACILLIN SODIUM\TAZOBACTAM SODIUM [Suspect]
     Active Substance: PIPERACILLIN SODIUM\TAZOBACTAM SODIUM
     Indication: Vomiting
     Dosage: UNK
  92. PIPERACILLIN SODIUM\TAZOBACTAM SODIUM [Suspect]
     Active Substance: PIPERACILLIN SODIUM\TAZOBACTAM SODIUM
     Indication: Respiratory arrest
  93. CEFUROXIME AXETIL [Suspect]
     Active Substance: CEFUROXIME AXETIL
     Indication: Antibiotic therapy
     Dosage: UNK
  94. SODIUM CHLORIDE [Suspect]
     Active Substance: SODIUM CHLORIDE
     Indication: Pneumonia
     Dosage: DARROW LIQ GLUCOSE
     Route: 065

REACTIONS (56)
  - Circulatory collapse [Fatal]
  - Brain injury [Fatal]
  - Pneumonia [Fatal]
  - Muscular weakness [Fatal]
  - Inflammation [Fatal]
  - Spinal muscular atrophy [Fatal]
  - Atelectasis [Fatal]
  - Motor dysfunction [Fatal]
  - Respiratory arrest [Fatal]
  - Pneumonia aspiration [Fatal]
  - Interstitial lung disease [Fatal]
  - Dehydration [Fatal]
  - Respiratory tract infection bacterial [Fatal]
  - Metabolic disorder [Fatal]
  - Lung consolidation [Fatal]
  - Injury [Fatal]
  - Malaise [Fatal]
  - Dysphagia [Fatal]
  - Tachypnoea [Fatal]
  - Increased bronchial secretion [Fatal]
  - Dyspnoea [Fatal]
  - Pyrexia [Fatal]
  - Vomiting [Fatal]
  - Muscle atrophy [Fatal]
  - Ischaemic cerebral infarction [Fatal]
  - Endotracheal intubation [Fatal]
  - Positive airway pressure therapy [Fatal]
  - Mechanical ventilation [Fatal]
  - Disease complication [Fatal]
  - Lower respiratory tract infection bacterial [Fatal]
  - Secretion discharge [Fatal]
  - Pneumococcal sepsis [Fatal]
  - Stoma closure [Fatal]
  - Scoliosis [Fatal]
  - Bronchial disorder [Fatal]
  - Demyelination [Fatal]
  - Motor neurone disease [Fatal]
  - Lung infiltration [Fatal]
  - Lymphadenectomy [Fatal]
  - Ascites [Fatal]
  - Sputum increased [Fatal]
  - Condition aggravated [Fatal]
  - Diarrhoea [Fatal]
  - Cerebral ischaemia [Fatal]
  - Intestinal ischaemia [Fatal]
  - Chest X-ray abnormal [Fatal]
  - Resuscitation [Fatal]
  - Product use in unapproved indication [Fatal]
  - Off label use [Fatal]
  - Positive airway pressure therapy [Fatal]
  - Dyspnoea [Fatal]
  - Injury [Fatal]
  - Dysphagia [Fatal]
  - Pneumonia [Fatal]
  - Respiratory arrest [Fatal]
  - Endotracheal intubation [Fatal]

NARRATIVE: CASE EVENT DATE: 20160620
